FAERS Safety Report 13087765 (Version 1)
Quarter: 2017Q1

REPORT INFORMATION
  Report Type: Spontaneous
  Country: US (occurrence: US)
  Receive Date: 20170105
  Receipt Date: 20170105
  Transmission Date: 20170428
  Serious: No
  Sender: FDA-Public Use
  Company Number: US-TEVA-719395ACC

PATIENT
  Age: 18 Year
  Sex: Female
  Weight: 86.26 kg

DRUGS (1)
  1. PLAN B ONE-STEP [Suspect]
     Active Substance: LEVONORGESTREL
     Indication: POST COITAL CONTRACEPTION
     Dates: start: 20161022, end: 20161022

REACTIONS (6)
  - Nausea [Recovered/Resolved]
  - Fatigue [Recovered/Resolved]
  - Breast tenderness [Recovered/Resolved]
  - Muscle spasms [Not Recovered/Not Resolved]
  - Headache [Recovered/Resolved]
  - Menstruation delayed [Not Recovered/Not Resolved]

NARRATIVE: CASE EVENT DATE: 20161023
